FAERS Safety Report 5823821-7 (Version None)
Quarter: 2008Q3

REPORT INFORMATION
  Report Type: 
  Country: None (occurrence: None)
  Receive Date: 20080725
  Receipt Date: 20080717
  Transmission Date: 20090109
  Serious: Yes (Other)
  Sender: FDA-Public Use
  Company Number: FR-PFIZER INC-2008060413

PATIENT

DRUGS (5)
  1. IRINOTECAN HCL [Suspect]
  2. ONDANSETRON [Concomitant]
     Indication: PREMEDICATION
  3. METOCLOPRAMIDE [Concomitant]
     Indication: PREMEDICATION
  4. ATROPINE [Concomitant]
     Indication: PREMEDICATION
  5. NICARDIPINE HYDROCHLORIDE [Concomitant]

REACTIONS (1)
  - DYSARTHRIA [None]
